FAERS Safety Report 12237879 (Version 1)
Quarter: 2016Q2

REPORT INFORMATION
  Report Type: Spontaneous
  Country: US (occurrence: None)
  Receive Date: 20160404
  Receipt Date: 20160404
  Transmission Date: 20160815
  Serious: Yes (Hospitalization)
  Sender: FDA-Public Use
  Company Number: None

PATIENT
  Age: 76 Year
  Sex: Male
  Weight: 45.6 kg

DRUGS (6)
  1. CLOPIDOGREL [Suspect]
     Active Substance: CLOPIDOGREL BISULFATE
     Indication: VASCULAR GRAFT OCCLUSION
     Dosage: 1 TAB EVERY DAY PO
     Route: 048
     Dates: start: 20151020, end: 20151109
  2. ASPIRIN. [Suspect]
     Active Substance: ASPIRIN
     Indication: ANGIOPLASTY
     Dosage: 1 TAB EVERY DAY PO
     Route: 048
     Dates: start: 20100125
  3. CLOPIDOGREL [Suspect]
     Active Substance: CLOPIDOGREL BISULFATE
     Indication: ANGIOPLASTY
     Dosage: 1 TAB EVERY DAY PO
     Route: 048
     Dates: start: 20151020, end: 20151109
  4. ASPIRIN. [Suspect]
     Active Substance: ASPIRIN
     Indication: VASCULAR GRAFT OCCLUSION
     Dosage: 1 TAB EVERY DAY PO
     Route: 048
     Dates: start: 20100125
  5. ASPIRIN. [Suspect]
     Active Substance: ASPIRIN
     Indication: PROPHYLAXIS
     Dosage: 1 TAB EVERY DAY PO
     Route: 048
     Dates: start: 20100125
  6. CLOPIDOGREL [Suspect]
     Active Substance: CLOPIDOGREL BISULFATE
     Indication: PROPHYLAXIS
     Dosage: 1 TAB EVERY DAY PO
     Route: 048
     Dates: start: 20151020, end: 20151109

REACTIONS (3)
  - Epistaxis [None]
  - Dermatitis [None]
  - Rash pruritic [None]

NARRATIVE: CASE EVENT DATE: 20151101
